FAERS Safety Report 4667717-5 (Version None)
Quarter: 2005Q2

REPORT INFORMATION
  Report Type: 
  Country: None (occurrence: None)
  Receive Date: 20050520
  Receipt Date: 20050412
  Transmission Date: 20051028
  Serious: Yes (Hospitalization)
  Sender: FDA-Public Use
  Company Number: JP-MERCK-0504USA02962

PATIENT
  Age: 25 Year
  Sex: Female

DRUGS (2)
  1. PEPCID [Suspect]
     Route: 048
  2. TULOBUTEROL [Concomitant]
     Route: 065

REACTIONS (9)
  - ACUTE MYELOID LEUKAEMIA [None]
  - BEDRIDDEN [None]
  - BREAST SWELLING [None]
  - CHEST PAIN [None]
  - INDURATION [None]
  - INSOMNIA [None]
  - PAIN [None]
  - RESPIRATORY FAILURE [None]
  - UNEVALUABLE EVENT [None]
